FAERS Safety Report 6758394-8 (Version None)
Quarter: 2010Q2

REPORT INFORMATION
  Report Type: 
  Country: None (occurrence: None)
  Receive Date: 20100603
  Receipt Date: 20100520
  Transmission Date: 20101027
  Serious: Yes (Hospitalization)
  Sender: FDA-Public Use
  Company Number: DSJ-2010-04474

PATIENT
  Age: 74 Year
  Sex: Male

DRUGS (8)
  1. OLMESARTAN MEDOXOMIL [Suspect]
     Indication: HYPERTENSION
     Dosage: 20 MG (20 MG, 1 IN 1 D)
     Dates: start: 20100211, end: 20100317
  2. ASPIRIN [Concomitant]
  3. NITOROL R (ISOSORBIDE DINITRATE) (ISOSORBIDE DINITRATE) [Concomitant]
  4. ALLOPURINOL [Concomitant]
  5. BEZATOL SR (BEZAFIBRATE) (BEZAFIBRATE) [Concomitant]
  6. MEXITIL (MEXILETINE HYDROCHLORIDE) (MEXILETINE HYDROCHLORIDE) [Concomitant]
  7. HERBRESSER (DILTIAZEM HYDROCHLORIDE) (DILTIAZEM HYDROCHLORIDE) [Concomitant]
  8. PLAVIX [Concomitant]

REACTIONS (9)
  - ACUTE MYOCARDIAL INFARCTION [None]
  - CARDIAC ARREST [None]
  - CARDIAC PROCEDURE COMPLICATION [None]
  - CORONARY ARTERY OCCLUSION [None]
  - FALL [None]
  - LOSS OF CONSCIOUSNESS [None]
  - ORTHOSTATIC HYPOTENSION [None]
  - SINUS ARREST [None]
  - SYNCOPE [None]
